FAERS Safety Report 5281201-X (Version None)
Quarter: 2007Q1

REPORT INFORMATION
  Report Type: 
  Country: None (occurrence: None)
  Receive Date: 20061220
  Receipt Date: 20060124
  Transmission Date: 20070707
  Serious: Yes (Hospitalization, Other)
  Sender: FDA-Public Use
  Company Number: 2006012894

PATIENT
  Age: 65 Year
  Sex: Male
  Weight: 64.8644 kg

DRUGS (1)
  1. CARDENALIN (DOXAZOSIN) [Suspect]
     Indication: PROSTATISM

REACTIONS (3)
  - BLOOD GLUCOSE INCREASED [None]
  - BRADYCARDIA [None]
  - SYNCOPE [None]
